FAERS Safety Report 10424228 (Version 3)
Quarter: 2014Q4

REPORT INFORMATION
  Report Type: Spontaneous
  Country: JP (occurrence: JP)
  Receive Date: 20140902
  Receipt Date: 20141013
  Transmission Date: 20150528
  Serious: Yes (Other)
  Sender: FDA-Public Use
  Company Number: PHHY2014JP108976

PATIENT
  Sex: Female

DRUGS (1)
  1. TASIGNA [Suspect]
     Active Substance: NILOTINIB
     Indication: CHRONIC MYELOID LEUKAEMIA
     Route: 048
     Dates: start: 201308, end: 201403

REACTIONS (1)
  - Cytopenia [Unknown]

NARRATIVE: CASE EVENT DATE: 201308
